FAERS Safety Report 5348097-9 (Version None)
Quarter: 2007Q2

REPORT INFORMATION
  Report Type: 
  Country: None (occurrence: None)
  Receive Date: 20070606
  Receipt Date: 20070529
  Transmission Date: 20071010
  Serious: Yes (Hospitalization)
  Sender: FDA-Public Use
  Company Number: US-AMGEN-STX223739

PATIENT
  Sex: Female
  Weight: 64.5 kg

DRUGS (14)
  1. ENBREL [Suspect]
     Indication: RHEUMATOID ARTHRITIS
     Route: 058
     Dates: start: 20001220
  2. PREDNISONE TAB [Concomitant]
  3. REQUIP [Concomitant]
  4. METAMUCIL [Concomitant]
  5. TYLENOL [Concomitant]
  6. ALLEGRA [Concomitant]
  7. COZAAR [Concomitant]
  8. FLEXERIL [Concomitant]
  9. ZETIA [Concomitant]
  10. COENZYME Q10 [Concomitant]
  11. PREVACID [Concomitant]
  12. LISINOPRIL [Concomitant]
  13. AMBIEN [Concomitant]
  14. TOPROL-XL [Concomitant]

REACTIONS (1)
  - GALLBLADDER OPERATION [None]
